FAERS Safety Report 10537512 (Version 1)
Quarter: 2014Q4

REPORT INFORMATION
  Report Type: Spontaneous
  Country: US (occurrence: None)
  Receive Date: 20141022
  Receipt Date: 20141022
  Transmission Date: 20150529
  Serious: Yes (Other)
  Sender: FDA-Public Use
  Company Number: None

PATIENT
  Age: 23 Year
  Sex: Female

DRUGS (8)
  1. SOVALDI [Concomitant]
     Active Substance: SOFOSBUVIR
  2. OLYSIO [Suspect]
     Active Substance: SIMEPREVIR
     Indication: CHRONIC HEPATITIS C
     Route: 048
     Dates: start: 20140913
  3. SOVALDI [Suspect]
     Active Substance: SOFOSBUVIR
     Indication: CHRONIC HEPATITIS C
     Route: 048
     Dates: start: 20140913
  4. VONLAFAXINE [Concomitant]
  5. OLYSIO [Concomitant]
     Active Substance: SIMEPREVIR
  6. SOVALDI [Suspect]
     Active Substance: SOFOSBUVIR
     Route: 048
     Dates: start: 20140913
  7. OLYSIO [Suspect]
     Active Substance: SIMEPREVIR
     Route: 048
     Dates: start: 20140913
  8. RIBAVIRIN. [Concomitant]
     Active Substance: RIBAVIRIN

REACTIONS (2)
  - Decreased appetite [None]
  - Vision blurred [None]
